FAERS Safety Report 22286298 (Version 9)
Quarter: 2024Q1

REPORT INFORMATION
  Report Type: Spontaneous
  Country: CA (occurrence: CA)
  Receive Date: 20230505
  Receipt Date: 20240126
  Transmission Date: 20240410
  Serious: Yes (Other)
  Sender: FDA-Public Use
  Company Number: CA-CELLTRION INC.-2022CA021708

PATIENT

DRUGS (12)
  1. INFLECTRA [Suspect]
     Active Substance: INFLIXIMAB-DYYB
     Indication: Rheumatoid arthritis
     Dosage: 3 MG/KG, WEEKS 0, 2, 6 THEN Q 8 WEEKS
     Route: 042
     Dates: start: 20221130
  2. INFLECTRA [Suspect]
     Active Substance: INFLIXIMAB-DYYB
     Dosage: 3 MG/KG, EVERY 8 WEEKS
     Route: 042
     Dates: start: 20230109
  3. INFLECTRA [Suspect]
     Active Substance: INFLIXIMAB-DYYB
     Dosage: 400 MG (5 MG/KG EVERY 6 WEEK, ONE INFUSION AT Q6 WEEKS, THEN RETURN TO Q8 WEEKS)
     Route: 042
     Dates: start: 20230228, end: 20230228
  4. INFLECTRA [Suspect]
     Active Substance: INFLIXIMAB-DYYB
     Dosage: 400 MG (5 MG/KG), EVERY 8 WEEKS
     Route: 042
     Dates: start: 20230425
  5. INFLECTRA [Suspect]
     Active Substance: INFLIXIMAB-DYYB
     Dosage: 400 MG (5 MG/KG), EVERY 8 WEEKS
     Route: 042
     Dates: start: 20230620
  6. INFLECTRA [Suspect]
     Active Substance: INFLIXIMAB-DYYB
     Dosage: 400 MG (5 MG/KG), EVERY 8 WEEKS
     Route: 042
     Dates: start: 20230809
  7. INFLECTRA [Suspect]
     Active Substance: INFLIXIMAB-DYYB
     Dosage: 405 MG (5 MG/KG), AFTER 8 WEEKS (PRESCRIBED TREATMENTS EVERY 6 WEEKS)
     Route: 042
     Dates: start: 20230818
  8. INFLECTRA [Suspect]
     Active Substance: INFLIXIMAB-DYYB
     Dosage: 405 MG (5 MG/KG), AFTER 8 WEEKS (PRESCRIBED TREATMENTS EVERY 6 WEEKS)
     Route: 042
     Dates: start: 20230928
  9. INFLECTRA [Suspect]
     Active Substance: INFLIXIMAB-DYYB
     Dosage: 560 MG (7 MG/KG), AFTER 6 WEEKS
     Route: 042
     Dates: start: 20231109
  10. INFLECTRA [Suspect]
     Active Substance: INFLIXIMAB-DYYB
     Dosage: 560 MG (7 MG/KG), AFTER 6 WEEKS
     Route: 042
     Dates: start: 20231109
  11. PREDNISONE [Concomitant]
     Active Substance: PREDNISONE
     Dosage: UNK, WEEKLY
  12. PREDNISONE [Concomitant]
     Active Substance: PREDNISONE
     Dosage: UNK (14 DAYS PRESCRIBED)

REACTIONS (13)
  - Therapeutic response shortened [Unknown]
  - Condition aggravated [Not Recovered/Not Resolved]
  - Tooth infection [Recovered/Resolved]
  - Influenza [Not Recovered/Not Resolved]
  - Vomiting [Unknown]
  - Diarrhoea [Not Recovered/Not Resolved]
  - Dyspepsia [Not Recovered/Not Resolved]
  - Nausea [Not Recovered/Not Resolved]
  - Off label use [Unknown]
  - Synovitis [Unknown]
  - Fall [Not Recovered/Not Resolved]
  - Joint injury [Not Recovered/Not Resolved]
  - Joint swelling [Unknown]

NARRATIVE: CASE EVENT DATE: 20220101
